FAERS Safety Report 4525225-6 (Version None)
Quarter: 2004Q4

REPORT INFORMATION
  Report Type: 
  Country: None (occurrence: None)
  Receive Date: 20041213
  Receipt Date: 20041201
  Transmission Date: 20050328
  Serious: Yes (Other)
  Sender: FDA-Public Use
  Company Number: FR-BRISTOL-MYERS SQUIBB COMPANY-12783783

PATIENT
  Age: 81 Year
  Sex: Female

DRUGS (7)
  1. IRBESARTAN [Suspect]
     Indication: HYPERTENSION
     Route: 048
     Dates: start: 20040601, end: 20041101
  2. PREVISCAN [Concomitant]
  3. SEROPRAM [Concomitant]
  4. CORDARONE [Concomitant]
  5. FOSAMAX [Concomitant]
  6. VITAMIN D [Concomitant]
  7. STILNOX [Concomitant]

REACTIONS (3)
  - ABNORMAL BEHAVIOUR [None]
  - HYPONATRAEMIA [None]
  - OEDEMA [None]
